FAERS Safety Report 14678771 (Version 2)
Quarter: 2018Q2

REPORT INFORMATION
  Report Type: Spontaneous
  Country: ES (occurrence: ES)
  Receive Date: 20180326
  Receipt Date: 20180620
  Transmission Date: 20180711
  Serious: Yes (Death, Hospitalization, Other)
  Sender: FDA-Public Use
  Company Number: ES-ACCORD-064955

PATIENT
  Age: 36 Year
  Sex: Male

DRUGS (4)
  1. ARIPIPRAZOLE. [Suspect]
     Active Substance: ARIPIPRAZOLE
     Indication: DEPRESSION
  2. ATORVASTATIN [Concomitant]
     Active Substance: ATORVASTATIN
  3. VENLAFAXINE [Suspect]
     Active Substance: VENLAFAXINE HYDROCHLORIDE
     Indication: DEPRESSION
  4. TOPIRAMATE. [Suspect]
     Active Substance: TOPIRAMATE
     Indication: DEPRESSION

REACTIONS (2)
  - Off label use [Unknown]
  - Heat stroke [Fatal]
